FAERS Safety Report 18304797 (Version 1)
Quarter: 2020Q3

REPORT INFORMATION
  Report Type: Spontaneous
  Country: US (occurrence: US)
  Receive Date: 20200924
  Receipt Date: 20200924
  Transmission Date: 20201103
  Serious: No
  Sender: FDA-Public Use
  Company Number: US-GLENMARK PHARMACEUTICALS-2020GMK048825

PATIENT

DRUGS (3)
  1. PROBIOTICS NOS [Concomitant]
     Active Substance: PROBIOTICS NOS
     Indication: PRODUCT USED FOR UNKNOWN INDICATION
     Dosage: UNK
     Route: 065
  2. COLESEVELAM HYDROCHLORIDE FOR ORAL SUSUPENSION [Suspect]
     Active Substance: COLESEVELAM HYDROCHLORIDE
     Indication: COLITIS
     Dosage: 1 DOSAGE FORM, SINGLE (1 PACK DAILY, USED ONLY ONCE)
     Route: 048
     Dates: start: 20200715, end: 20200715
  3. GABAPENTIN. [Concomitant]
     Active Substance: GABAPENTIN
     Indication: PRODUCT USED FOR UNKNOWN INDICATION
     Dosage: UNK
     Route: 065

REACTIONS (3)
  - Product use in unapproved indication [Unknown]
  - No adverse event [Unknown]
  - Product use complaint [Unknown]

NARRATIVE: CASE EVENT DATE: 20200715
